FAERS Safety Report 23439756 (Version 1)
Quarter: 2024Q1

REPORT INFORMATION
  Report Type: Spontaneous
  Country: US (occurrence: US)
  Receive Date: 20240124
  Receipt Date: 20240124
  Transmission Date: 20240410
  Serious: No
  Sender: FDA-Public Use
  Company Number: US-PFIZER INC-202400020378

PATIENT
  Age: 75 Year
  Sex: Male
  Weight: 82.1 kg

DRUGS (1)
  1. PAXLOVID [Suspect]
     Active Substance: NIRMATRELVIR\RITONAVIR
     Indication: COVID-19 treatment
     Dosage: UNK, THREE TABLETS TWICE A DAY BY MOUTH
     Dates: start: 20240108

REACTIONS (3)
  - COVID-19 [Unknown]
  - Disease recurrence [Unknown]
  - Aphonia [Unknown]

NARRATIVE: CASE EVENT DATE: 20240116
